FAERS Safety Report 26059566 (Version 1)
Quarter: 2025Q4

REPORT INFORMATION
  Report Type: Spontaneous
  Country: US (occurrence: None)
  Receive Date: 20251118
  Receipt Date: 20251118
  Transmission Date: 20260119
  Serious: Yes (Hospitalization)
  Sender: FDA-CTU
  Company Number: None

PATIENT
  Age: 76 Year
  Sex: Male
  Weight: 220 kg

DRUGS (4)
  1. DARATUMUMAB\HYALURONIDASE-FIHJ [Suspect]
     Active Substance: DARATUMUMAB\HYALURONIDASE-FIHJ
     Dates: end: 20251023
  2. LENALIDOMIDE [Suspect]
     Active Substance: LENALIDOMIDE
     Dates: end: 20251112
  3. ASPIRIN [Suspect]
     Active Substance: ASPIRIN
  4. LOSARTAN [Suspect]
     Active Substance: LOSARTAN
     Dates: end: 20251112

REACTIONS (4)
  - Speech disorder [None]
  - Hemiparesis [None]
  - Middle cerebral artery stroke [None]
  - Therapy cessation [None]

NARRATIVE: CASE EVENT DATE: 20251107
